FAERS Safety Report 4464535-8 (Version None)
Quarter: 2004Q3

REPORT INFORMATION
  Report Type: 
  Country: None (occurrence: None)
  Receive Date: 20040929
  Receipt Date: 20040917
  Transmission Date: 20050211
  Serious: Yes (Death, Hospitalization)
  Sender: FDA-Public Use
  Company Number: HQWYE129720SEP04

PATIENT

DRUGS (2)
  1. TAZOCIN (PIPERACILLIN/ TAZOBACTAM, INJECTION) [Suspect]
     Dosage: INTRAVENOUS
     Route: 042
     Dates: end: 20040902
  2. ATIVAN [Suspect]

REACTIONS (3)
  - EOSINOPHILIA [None]
  - HYPERTHERMIA [None]
  - LARYNGEAL OEDEMA [None]
